FAERS Safety Report 4587313-8 (Version None)
Quarter: 2005Q1

REPORT INFORMATION
  Report Type: 
  Country: None (occurrence: None)
  Receive Date: 20050215
  Receipt Date: 20050201
  Transmission Date: 20050727
  Serious: Yes (Hospitalization)
  Sender: FDA-Public Use
  Company Number: 2005AP00708

PATIENT
  Age: 67 Year
  Sex: Female

DRUGS (2)
  1. IRESSA [Suspect]
     Indication: BREAST CANCER
     Dosage: 500 MG DAILY PO
     Route: 048
     Dates: start: 20040518
  2. ACETAMINOPHEN [Concomitant]

REACTIONS (2)
  - ABDOMINAL PAIN [None]
  - DIARRHOEA [None]
